FAERS Safety Report 6296111-9 (Version None)
Quarter: 2009Q3

REPORT INFORMATION
  Report Type: 
  Country: None (occurrence: None)
  Receive Date: 20090804
  Receipt Date: 20090728
  Transmission Date: 20100115
  Serious: Yes (Other)
  Sender: FDA-Public Use
  Company Number: US-BAYER-200926740GPV

PATIENT
  Age: 69 Year
  Sex: Male
  Weight: 64 kg

DRUGS (7)
  1. ASPIRIN [Suspect]
     Indication: DRUG USE FOR UNKNOWN INDICATION
     Route: 048
     Dates: end: 20090619
  2. SUNITINIB MALATE [Suspect]
     Indication: RENAL CELL CARCINOMA
     Route: 048
     Dates: start: 20090530
  3. NU-LOTAN [Concomitant]
     Route: 048
  4. BEPRICOR [Concomitant]
     Route: 048
  5. NORVASC [Concomitant]
     Route: 048
  6. FERROMIA [Concomitant]
     Route: 048
     Dates: start: 20090607, end: 20090616
  7. INTERFERON ALFA [Concomitant]
     Indication: RENAL CELL CARCINOMA
     Dates: start: 20090523, end: 20090615

REACTIONS (3)
  - BONE MARROW FAILURE [None]
  - HAEMORRHAGE [None]
  - HYPOTHYROIDISM [None]
